FAERS Safety Report 15122609 (Version 3)
Quarter: 2018Q3

REPORT INFORMATION
  Report Type: Spontaneous
  Country: DE (occurrence: DE)
  Receive Date: 20180709
  Receipt Date: 20180730
  Transmission Date: 20181010
  Serious: Yes (Other)
  Sender: FDA-Public Use
  Company Number: DE-ARBOR PHARMACEUTICALS, LLC-DE-2018ARB000776

PATIENT
  Age: 90 Year
  Sex: Male

DRUGS (1)
  1. TRIPTODUR [Suspect]
     Active Substance: TRIPTORELIN
     Indication: PRODUCT USED FOR UNKNOWN INDICATION
     Dosage: 11.25 MG,  3 M
     Route: 065

REACTIONS (15)
  - Joint stiffness [Unknown]
  - Decreased appetite [Unknown]
  - Bone pain [Unknown]
  - Arthralgia [Unknown]
  - Immobile [Unknown]
  - Fatigue [Unknown]
  - Muscle spasms [Unknown]
  - Pain in extremity [Unknown]
  - Asthenia [Unknown]
  - Gait disturbance [Unknown]
  - Tremor [Unknown]
  - Back pain [Unknown]
  - Muscular weakness [Unknown]
  - Myalgia [Unknown]
  - Condition aggravated [Unknown]

NARRATIVE: CASE EVENT DATE: 20180325
